FAERS Safety Report 11627500 (Version 1)
Quarter: 2015Q4

REPORT INFORMATION
  Report Type: Report from Study
  Country: US (occurrence: US)
  Receive Date: 20151013
  Receipt Date: 20151013
  Transmission Date: 20160304
  Serious: Yes (Death, Life-Threatening)
  Sender: FDA-Public Use
  Company Number: US-ROCHE-782291

PATIENT
  Age: 76 Year
  Sex: Female
  Weight: 102 kg

DRUGS (4)
  1. BEVACIZUMAB [Suspect]
     Active Substance: BEVACIZUMAB
     Indication: FALLOPIAN TUBE CANCER
     Dosage: OVER 30-90 MIN ON DAY 1. CYCLE: 21 DAYS. LAST DOSE OF PRIOR TO SAE: 14/MAR/2011.
     Route: 042
  2. CARBOPLATIN. [Suspect]
     Active Substance: CARBOPLATIN
     Indication: FALLOPIAN TUBE CANCER
     Dosage: AUC 5 OVER 30 MIN ON DAY 1. CYCLE: 21 DAYS.?LAST DOSE OF PRIOR TO SAE: 01/JUL/2011
     Route: 042
  3. DOCETAXEL. [Suspect]
     Active Substance: DOCETAXEL
     Indication: FALLOPIAN TUBE CANCER
     Dosage: OVER 1 HR ON DAY 1. CYCLE: 21 DAYS.
     Route: 042
  4. PACLITAXEL. [Suspect]
     Active Substance: PACLITAXEL
     Indication: FALLOPIAN TUBE CANCER
     Dosage: OVER 3 HRS ON DAY 1. CYCLE: 21 DAYS.?LAST DOSE OF PRIOR TO SAE: 01/JUL/2011
     Route: 042

REACTIONS (2)
  - Neutrophil count decreased [Recovered/Resolved]
  - Second primary malignancy [Fatal]

NARRATIVE: CASE EVENT DATE: 20110128
